FAERS Safety Report 6057550-4 (Version None)
Quarter: 2009Q1

REPORT INFORMATION
  Report Type: 
  Country: None (occurrence: None)
  Receive Date: 20090129
  Receipt Date: 20090122
  Transmission Date: 20090719
  Serious: Yes (Other)
  Sender: FDA-Public Use
  Company Number: US-BRISTOL-MYERS SQUIBB COMPANY-14481006

PATIENT
  Age: 60 Year
  Sex: Female
  Weight: 73 kg

DRUGS (8)
  1. CAPTOPRIL [Suspect]
     Indication: HYPERTENSION
     Dosage: 25MG IN 1999. 22MAR07, 100MG,BID
     Dates: start: 19990101, end: 20070501
  2. AVAPRO [Suspect]
     Dosage: RESTARTED IN 2008
     Dates: end: 20081201
  3. ATENOLOL [Concomitant]
  4. SYNTHROID [Concomitant]
  5. MULTI-VITAMIN [Concomitant]
  6. VITAMIN E [Concomitant]
  7. FUROSEMIDE [Concomitant]
  8. NOVOLOG [Concomitant]
     Dosage: 1 DOSAGEFORM= 70/30

REACTIONS (16)
  - AMNESIA [None]
  - CONSTIPATION [None]
  - DISTURBANCE IN ATTENTION [None]
  - EYE PRURITUS [None]
  - EYE SWELLING [None]
  - FATIGUE [None]
  - FEELING DRUNK [None]
  - HYPERSOMNIA [None]
  - HYPERTENSION [None]
  - LICHEN PLANUS [None]
  - MEDICATION ERROR [None]
  - MUSCLE SPASMS [None]
  - OEDEMA PERIPHERAL [None]
  - PAIN [None]
  - PROTEIN URINE PRESENT [None]
  - VAGINAL HAEMORRHAGE [None]
